FAERS Safety Report 4822051-5 (Version None)
Quarter: 2005Q4

REPORT INFORMATION
  Report Type: 
  Country: None (occurrence: None)
  Receive Date: 20051103
  Receipt Date: 20051014
  Transmission Date: 20060501
  Serious: Yes (Other)
  Sender: FDA-Public Use
  Company Number: GBS050717950

PATIENT
  Age: 78 Year
  Sex: Female
  Weight: 58 kg

DRUGS (1)
  1. ZYPREXA [Suspect]
     Indication: NAUSEA
     Dosage: 2.5 MG
     Dates: start: 20030101

REACTIONS (2)
  - DYSPNOEA [None]
  - PLEURAL FIBROSIS [None]
